FAERS Safety Report 8447160-3 (Version None)
Quarter: 2012Q2

REPORT INFORMATION
  Report Type: 
  Country: None (occurrence: None)
  Receive Date: 20120619
  Receipt Date: 20120614
  Transmission Date: 20120825
  Serious: No
  Sender: FDA-Public Use
  Company Number: US-PFIZER INC-2012121490

PATIENT
  Sex: Male
  Weight: 104 kg

DRUGS (4)
  1. PROVENTIL-HFA [Concomitant]
     Indication: DYSPNOEA
     Dosage: UNK, 2X/DAY
  2. NEURONTIN [Suspect]
     Indication: RESTLESS LEGS SYNDROME
     Dosage: 600 MG, 3X/DAY
     Dates: start: 20110101, end: 20110101
  3. LISINOPRIL AND HYDROCHLOROTHIAZIDE [Concomitant]
     Indication: HYPERTENSION
     Dosage: UNK, 2X/DAY
  4. NEURONTIN [Suspect]
     Indication: BACK PAIN
     Dosage: 600 MG, 3X/DAY
     Dates: start: 20110101

REACTIONS (3)
  - IRRITABLE BOWEL SYNDROME [None]
  - MEMORY IMPAIRMENT [None]
  - DYSPEPSIA [None]
